FAERS Safety Report 25065316 (Version 1)
Quarter: 2025Q1

REPORT INFORMATION
  Report Type: Spontaneous
  Country: FR (occurrence: FR)
  Receive Date: 20250311
  Receipt Date: 20250311
  Transmission Date: 20250409
  Serious: Yes (Other)
  Sender: GALPHARM INTERNATIONAL
  Company Number: FR-MLMSERVICE-20250225-PI418056-00029-1

PATIENT
  Sex: Female

DRUGS (1)
  1. ACETAMINOPHEN [Suspect]
     Active Substance: ACETAMINOPHEN
     Indication: Suicide attempt
     Route: 065

REACTIONS (1)
  - Suicide attempt [Not Recovered/Not Resolved]
